FAERS Safety Report 7788210-7 (Version None)
Quarter: 2011Q3

REPORT INFORMATION
  Report Type: 
  Country: None (occurrence: None)
  Receive Date: 20110930
  Receipt Date: 20110926
  Transmission Date: 20111222
  Serious: Yes (Death)
  Sender: FDA-Public Use
  Company Number: FR-JNJFOC-20110910194

PATIENT
  Sex: Male

DRUGS (4)
  1. DURAGESIC-100 [Suspect]
     Indication: PRODUCT USED FOR UNKNOWN INDICATION
     Route: 062
  2. ACTIQ [Suspect]
     Indication: PRODUCT USED FOR UNKNOWN INDICATION
     Route: 048
  3. UNKNOWN MEDICATION [Concomitant]
     Route: 065
  4. MEDICATED DRESSINGS [Concomitant]
     Route: 065

REACTIONS (1)
  - DEATH [None]
